FAERS Safety Report 11713438 (Version 2)
Quarter: 2015Q4

REPORT INFORMATION
  Report Type: Spontaneous
  Country: MX (occurrence: MX)
  Receive Date: 20151109
  Receipt Date: 20151128
  Transmission Date: 20160304
  Serious: Yes (Hospitalization, Other)
  Sender: FDA-Public Use
  Company Number: MX-JNJFOC-20151102044

PATIENT
  Age: 7 Day
  Sex: Male

DRUGS (7)
  1. BENZOCAINE. [Interacting]
     Active Substance: BENZOCAINE
     Indication: WOUND
     Route: 065
  2. PARACETAMOL [Suspect]
     Active Substance: ACETAMINOPHEN
     Indication: PRODUCT USED FOR UNKNOWN INDICATION
     Route: 042
  3. BENZOCAINE W/KETANSERIN [Interacting]
     Active Substance: BENZOCAINE\KETANSERIN
     Indication: ANAESTHESIA
     Route: 065
  4. AMIKACIN [Concomitant]
     Active Substance: AMIKACIN
     Route: 042
  5. AMPICILLIN [Concomitant]
     Active Substance: AMPICILLIN
     Route: 042
  6. PARACETAMOL [Suspect]
     Active Substance: ACETAMINOPHEN
     Route: 042
  7. FENTANYL. [Concomitant]
     Active Substance: FENTANYL
     Dosage: DOSE: 2 MICROGRAM/KG/DOSE
     Route: 042

REACTIONS (2)
  - Drug interaction [Recovered/Resolved]
  - Methaemoglobinaemia [Recovered/Resolved]

NARRATIVE: CASE EVENT DATE: 20140513
